FAERS Safety Report 9157034 (Version 1)
Quarter: 2013Q1

REPORT INFORMATION
  Report Type: Spontaneous
  Country: US (occurrence: US)
  Receive Date: 20130312
  Receipt Date: 20130312
  Transmission Date: 20140127
  Serious: No
  Sender: FDA-Public Use
  Company Number: US-PFIZER INC-2013079656

PATIENT
  Sex: 0

DRUGS (3)
  1. PRISTIQ [Suspect]
     Dosage: 50 MG, DAILY
  2. PRISTIQ [Suspect]
     Dosage: 100 MG, DAILY
  3. PRISTIQ [Suspect]
     Dosage: 150 MG, DAILY

REACTIONS (1)
  - Drug ineffective [Not Recovered/Not Resolved]
